FAERS Safety Report 4886447-8 (Version None)
Quarter: 2006Q1

REPORT INFORMATION
  Report Type: 
  Country: None (occurrence: None)
  Receive Date: 20060120
  Receipt Date: 20051208
  Transmission Date: 20060701
  Serious: Yes (Death, Hospitalization)
  Sender: FDA-Public Use
  Company Number: US-MERCK-0512USA01530

PATIENT
  Age: 52 Year
  Sex: Female
  Weight: 55 kg

DRUGS (18)
  1. VIOXX [Suspect]
     Indication: ARTHRALGIA
     Route: 048
     Dates: start: 20010101, end: 20040101
  2. VIOXX [Suspect]
     Indication: FIBROMYALGIA
     Route: 048
     Dates: start: 20010101, end: 20040101
  3. TYLENOL (CAPLET) [Concomitant]
     Route: 065
  4. ZANAFLEX [Concomitant]
     Route: 065
  5. LORTAB [Concomitant]
     Route: 065
  6. PREVACID [Concomitant]
     Route: 065
  7. LIPITOR [Concomitant]
     Route: 065
  8. CLARITIN [Concomitant]
     Route: 065
  9. ALLEGRA [Concomitant]
     Route: 065
  10. RESTORIL [Concomitant]
     Route: 065
  11. ELAVIL [Concomitant]
     Route: 048
  12. DEMEROL [Concomitant]
     Route: 065
  13. OXYCONTIN [Concomitant]
     Route: 065
  14. XANAX [Concomitant]
     Route: 065
  15. NEURONTIN [Concomitant]
     Route: 065
  16. HYDROCODONE HYDROCHLORIDE [Concomitant]
     Route: 065
  17. PHENERGAN [Concomitant]
     Route: 065
  18. LIDODERM [Concomitant]
     Route: 065

REACTIONS (3)
  - ABDOMINAL PAIN UPPER [None]
  - CHEST PAIN [None]
  - MYOCARDIAL INFARCTION [None]
